FAERS Safety Report 19911679 (Version 1)
Quarter: 2021Q4

REPORT INFORMATION
  Report Type: Spontaneous
  Country: KR (occurrence: KR)
  Receive Date: 20211004
  Receipt Date: 20211004
  Transmission Date: 20220303
  Serious: Yes (Other)
  Sender: FDA-Public Use
  Company Number: KR-GLAXOSMITHKLINE-KR2021APC203887

PATIENT
  Age: 40 Year
  Sex: Male

DRUGS (4)
  1. KIVEXA [Suspect]
     Active Substance: ABACAVIR SULFATE\LAMIVUDINE
     Indication: HIV infection
     Dosage: 1 MG
     Route: 048
     Dates: start: 20130425
  2. DARUNAVIR [Concomitant]
     Active Substance: DARUNAVIR
     Indication: HIV infection
     Dosage: UNK
     Route: 048
     Dates: start: 20130417
  3. RANITIDINE [Concomitant]
     Active Substance: RANITIDINE
     Indication: Prophylaxis
     Dosage: UNK
     Dates: start: 20151231
  4. RITONAVIR [Concomitant]
     Active Substance: RITONAVIR
     Indication: HIV infection
     Dosage: UNK
     Route: 048
     Dates: start: 20130417

REACTIONS (2)
  - Syphilis [Recovered/Resolved]
  - Back pain [Unknown]

NARRATIVE: CASE EVENT DATE: 20151231
